FAERS Safety Report 17010561 (Version 1)
Quarter: 2019Q4

REPORT INFORMATION
  Report Type: Spontaneous
  Country: FR (occurrence: FR)
  Receive Date: 20191108
  Receipt Date: 20191108
  Transmission Date: 20200122
  Serious: Yes (Hospitalization)
  Sender: FDA-Public Use
  Company Number: FR-US-PROVELL PHARMACEUTICALS LLC-9024042

PATIENT
  Age: 69 Year
  Sex: Female

DRUGS (1)
  1. LEVOTHYROX NF [Suspect]
     Active Substance: LEVOTHYROXINE SODIUM
     Indication: PRODUCT USED FOR UNKNOWN INDICATION

REACTIONS (17)
  - Irritability [Recovering/Resolving]
  - Social avoidant behaviour [Recovering/Resolving]
  - Myalgia [Recovering/Resolving]
  - Influenza like illness [Recovering/Resolving]
  - Affect lability [Recovering/Resolving]
  - Alopecia [Recovering/Resolving]
  - Fatigue [Recovering/Resolving]
  - Blood thyroid stimulating hormone increased [Recovered/Resolved]
  - Feeling abnormal [Recovering/Resolving]
  - Migraine [Recovering/Resolving]
  - Loss of personal independence in daily activities [Recovering/Resolving]
  - Drug intolerance [Recovering/Resolving]
  - Affective disorder [Recovering/Resolving]
  - Blood pressure fluctuation [Recovering/Resolving]
  - Decreased interest [Recovering/Resolving]
  - Hypokinesia [Recovering/Resolving]
  - Depression [Recovering/Resolving]

NARRATIVE: CASE EVENT DATE: 20170227
